FAERS Safety Report 20708366 (Version 4)
Quarter: 2022Q2

REPORT INFORMATION
  Report Type: Spontaneous
  Country: US (occurrence: US)
  Receive Date: 20220414
  Receipt Date: 20220620
  Transmission Date: 20220720
  Serious: Yes (Other)
  Sender: FDA-Public Use
  Company Number: US-BRISTOL-MYERS SQUIBB COMPANY-2022-017689

PATIENT
  Age: 76 Year
  Sex: Female

DRUGS (2)
  1. REVLIMID [Suspect]
     Active Substance: LENALIDOMIDE
     Indication: Product used for unknown indication
     Dosage: AKE 1 CAPSULE BY MOUTH WITH WATER AT THE SAME TIME EVERY DAY ON DAYS 1-21 OF EACH 28 DAY CYCLE
     Route: 048
     Dates: start: 20220303
  2. REVLIMID [Suspect]
     Active Substance: LENALIDOMIDE
     Dosage: TAKE 1 CAPSULE (15MG) BY MOUTH EVERY DAY ON DAYS 1-21 OF EACH 28 DAY CYCLE. TAKE WHOLE WITH WATER AT
     Route: 048
     Dates: start: 20220302

REACTIONS (4)
  - Thrombocytopenia [Unknown]
  - Malignant neoplasm progression [Unknown]
  - Dyspnoea [Unknown]
  - Full blood count abnormal [Unknown]
